FAERS Safety Report 9508304 (Version 1)
Quarter: 2013Q3

REPORT INFORMATION
  Report Type: Spontaneous
  Country: US (occurrence: None)
  Receive Date: 20130906
  Receipt Date: 20130906
  Transmission Date: 20140515
  Serious: Yes (Life-Threatening, Hospitalization)
  Sender: FDA-Public Use
  Company Number: None

PATIENT
  Age: 75 Year
  Sex: Male
  Weight: 35.8 kg

DRUGS (2)
  1. PLAVIX [Suspect]
     Indication: STENT PLACEMENT
     Dosage: 1, QD, ORAL
     Route: 048
  2. ASPIRIN [Suspect]
     Dosage: 1, QD, ORAL
     Route: 048

REACTIONS (3)
  - Shock [None]
  - Upper gastrointestinal haemorrhage [None]
  - Renal failure acute [None]
